FAERS Safety Report 5518175-X (Version None)
Quarter: 2007Q4

REPORT INFORMATION
  Report Type: 
  Country: None (occurrence: None)
  Receive Date: 20071115
  Receipt Date: 20071105
  Transmission Date: 20080405
  Serious: Yes (Other)
  Sender: FDA-Public Use
  Company Number: US-AMGEN-KDL248593

PATIENT
  Sex: Female
  Weight: 74.9 kg

DRUGS (10)
  1. ENBREL [Suspect]
     Indication: RHEUMATOID ARTHRITIS
     Route: 058
     Dates: start: 20021027
  2. LEFLUNOMIDE [Concomitant]
     Dates: start: 20040801, end: 20060801
  3. RALOXIFENE HCL [Concomitant]
  4. PILOCARPINE [Concomitant]
  5. CARDURA [Concomitant]
  6. WELLBUTRIN [Concomitant]
  7. CLARITIN [Concomitant]
  8. FLONASE [Concomitant]
  9. NAPROXEN [Concomitant]
  10. PREDNISONE TAB [Concomitant]

REACTIONS (2)
  - ALANINE AMINOTRANSFERASE INCREASED [None]
  - ASPARTATE AMINOTRANSFERASE INCREASED [None]
